FAERS Safety Report 9010938 (Version 1)
Quarter: 2013Q1

REPORT INFORMATION
  Report Type: Report from Study
  Country: DE (occurrence: DE)
  Receive Date: 20130109
  Receipt Date: 20130109
  Transmission Date: 20140127
  Serious: Yes (Death)
  Sender: FDA-Public Use
  Company Number: DE-ROCHE-1175592

PATIENT
  Age: 71 Year
  Sex: Female
  Weight: 87 kg

DRUGS (4)
  1. CAPECITABINE [Suspect]
     Indication: BREAST CANCER
     Dosage: LAST DOSE PRIOR TO SAE: 27/DEC/2012
     Route: 048
     Dates: start: 20120903, end: 20121227
  2. PACLITAXEL [Suspect]
     Indication: BREAST CANCER
     Dosage: LAST DOSE PRIOR TO SAE: 17/DEC/2012
     Route: 042
     Dates: start: 20120903, end: 20121227
  3. CIPROFLOXACIN [Suspect]
     Indication: INFECTION
     Route: 048
     Dates: start: 20121227
  4. FRAGMIN P [Concomitant]
     Dosage: DOSE: 5000 IE DAILY
     Route: 065
     Dates: start: 20121023

REACTIONS (1)
  - Pulmonary embolism [Fatal]
